FAERS Safety Report 5783134-9 (Version None)
Quarter: 2008Q2

REPORT INFORMATION
  Report Type: 
  Country: None (occurrence: None)
  Receive Date: 20080619
  Receipt Date: 20080609
  Transmission Date: 20081010
  Serious: Yes (Hospitalization, Disabling)
  Sender: FDA-Public Use
  Company Number: OSCN-NO-0806S-0381

PATIENT
  Age: 57 Year
  Sex: Female

DRUGS (1)
  1. OMNISCAN [Suspect]
     Indication: RENAL TRANSPLANT
     Dosage: SINGLE DOSE, I.V.
     Route: 042
     Dates: start: 20030304, end: 20030304

REACTIONS (5)
  - FIBROSIS [None]
  - JOINT CONTRACTURE [None]
  - OEDEMA [None]
  - PAIN [None]
  - RASH ERYTHEMATOUS [None]
